FAERS Safety Report 24043819 (Version 1)
Quarter: 2024Q3

REPORT INFORMATION
  Report Type: Spontaneous
  Country: FR (occurrence: FR)
  Receive Date: 20240703
  Receipt Date: 20240703
  Transmission Date: 20241017
  Serious: Yes (Hospitalization, Other)
  Sender: AUROBINDO
  Company Number: FR-AFSSAPS-RS2024000609

PATIENT
  Age: 24 Year
  Sex: Female
  Weight: 67 kg

DRUGS (3)
  1. ACETAMINOPHEN [Suspect]
     Active Substance: ACETAMINOPHEN
     Indication: Headache
     Dosage: UNK
     Route: 048
     Dates: start: 20240527
  2. AUGMENTIN [Suspect]
     Active Substance: AMOXICILLIN\CLAVULANATE POTASSIUM
     Indication: Surgery
     Dosage: UNK
     Route: 048
     Dates: start: 20240425, end: 20240508
  3. XARELTO [Suspect]
     Active Substance: RIVAROXABAN
     Indication: Surgery
     Dosage: UNK
     Route: 048
     Dates: start: 20240425, end: 20240425

REACTIONS (1)
  - Hepatitis acute [Recovering/Resolving]

NARRATIVE: CASE EVENT DATE: 20240101
